FAERS Safety Report 18225887 (Version 1)
Quarter: 2020Q3

REPORT INFORMATION
  Report Type: Spontaneous
  Country: FR (occurrence: FR)
  Receive Date: 20200903
  Receipt Date: 20200903
  Transmission Date: 20201103
  Serious: Yes (Death)
  Sender: FDA-Public Use
  Company Number: FR-TEVA-2020-FR-1822264

PATIENT
  Age: 46 Year
  Sex: Female

DRUGS (6)
  1. ZOPICLONE [Suspect]
     Active Substance: ZOPICLONE
     Indication: TOXICITY TO VARIOUS AGENTS
     Route: 048
     Dates: start: 20200721, end: 20200721
  2. PROPRANOLOL [Suspect]
     Active Substance: PROPRANOLOL HYDROCHLORIDE
     Indication: TOXICITY TO VARIOUS AGENTS
     Route: 048
     Dates: start: 20200721, end: 20200721
  3. BACLOFENE [Suspect]
     Active Substance: BACLOFEN
     Indication: TOXICITY TO VARIOUS AGENTS
     Route: 048
     Dates: start: 20200721, end: 20200721
  4. PAROXETINE. [Suspect]
     Active Substance: PAROXETINE
     Indication: TOXICITY TO VARIOUS AGENTS
     Route: 048
     Dates: start: 20200721, end: 20200721
  5. LAROXYL [Suspect]
     Active Substance: AMITRIPTYLINE HYDROCHLORIDE
     Indication: TOXICITY TO VARIOUS AGENTS
     Route: 048
     Dates: start: 20200721, end: 20200721
  6. OLANZAPINE. [Suspect]
     Active Substance: OLANZAPINE
     Indication: TOXICITY TO VARIOUS AGENTS
     Route: 048
     Dates: start: 20200721, end: 20200721

REACTIONS (3)
  - Bradycardia [Fatal]
  - Hypotension [Fatal]
  - Coma [Fatal]

NARRATIVE: CASE EVENT DATE: 20200721
